FAERS Safety Report 9423097 (Version 3)
Quarter: 2014Q1

REPORT INFORMATION
  Report Type: Spontaneous
  Country: JP (occurrence: JP)
  Receive Date: 20130726
  Receipt Date: 20140116
  Transmission Date: 20141002
  Serious: Yes (Hospitalization)
  Sender: FDA-Public Use
  Company Number: JP-JNJFOC-20130713629

PATIENT
  Age: 85 Year
  Sex: Female
  Weight: 57 kg

DRUGS (12)
  1. SIMPONI [Suspect]
     Indication: RHEUMATOID ARTHRITIS
     Route: 058
     Dates: start: 20130417, end: 20130417
  2. RHEUMATREX [Suspect]
     Indication: RHEUMATOID ARTHRITIS
     Route: 048
     Dates: start: 201208, end: 20130325
  3. RHEUMATREX [Suspect]
     Indication: RHEUMATOID ARTHRITIS
     Route: 048
     Dates: start: 20130402
  4. RHEUMATREX [Suspect]
     Indication: RHEUMATOID ARTHRITIS
     Route: 048
     Dates: start: 20130326, end: 20130401
  5. PREDONINE [Suspect]
     Indication: RHEUMATOID ARTHRITIS
     Route: 048
     Dates: start: 201208
  6. FAMOTIDINE [Concomitant]
     Route: 048
     Dates: start: 201303
  7. MAINTATE [Concomitant]
     Route: 048
     Dates: start: 2011
  8. DIOVAN [Concomitant]
     Route: 048
     Dates: start: 2001
  9. MOBIC [Concomitant]
     Route: 048
     Dates: start: 20130325
  10. ISCOTIN [Concomitant]
     Route: 048
     Dates: start: 20130417
  11. BACTRAMIN [Concomitant]
     Route: 048
  12. FOSAMAC [Concomitant]
     Route: 048

REACTIONS (1)
  - Pneumonia cryptococcal [Recovering/Resolving]
